FAERS Safety Report 7150697-0 (Version None)
Quarter: 2010Q4

REPORT INFORMATION
  Report Type: 
  Country: None (occurrence: None)
  Receive Date: 20101210
  Receipt Date: 20101130
  Transmission Date: 20110411
  Serious: Yes (Other)
  Sender: FDA-Public Use
  Company Number: US-SANOFI-AVENTIS-2010SA070393

PATIENT
  Age: 71 Year
  Sex: Female
  Weight: 99 kg

DRUGS (6)
  1. MULTAQ [Suspect]
     Indication: ATRIAL FIBRILLATION
     Route: 048
     Dates: start: 20101114
  2. TOPROL-XL [Concomitant]
     Indication: PROPHYLAXIS
  3. OMEPRAZOLE [Concomitant]
  4. COUMADIN [Concomitant]
     Indication: ATRIAL FIBRILLATION
     Dates: start: 20100801
  5. LASIX [Concomitant]
  6. LOPRESSOR [Concomitant]
     Dosage: ATENOLOL 50/25 TWICE DAILY

REACTIONS (3)
  - ATRIAL FIBRILLATION [None]
  - DIZZINESS [None]
  - VERTIGO [None]
